FAERS Safety Report 5516431-2 (Version None)
Quarter: 2007Q4

REPORT INFORMATION
  Report Type: 
  Country: None (occurrence: None)
  Receive Date: 20071114
  Receipt Date: 20070222
  Transmission Date: 20080405
  Serious: No
  Sender: FDA-Public Use
  Company Number: A0640364A

PATIENT
  Age: 53 Year
  Sex: Female

DRUGS (1)
  1. COMMIT [Suspect]
     Dates: start: 20070221, end: 20070221

REACTIONS (3)
  - INTENTIONAL DRUG MISUSE [None]
  - PHARYNGOLARYNGEAL PAIN [None]
  - THROAT IRRITATION [None]
